FAERS Safety Report 8961136 (Version 1)
Quarter: 2012Q4

REPORT INFORMATION
  Report Type: 
  Country: US (occurrence: US)
  Receive Date: 20121213
  Receipt Date: 20121213
  Transmission Date: 20130627
  Serious: No
  Sender: FDA-Public Use
  Company Number: US-ALLERGAN-1215201US

PATIENT
  Age: 76 Year
  Sex: Male

DRUGS (3)
  1. LUMIGAN� 0.01% [Suspect]
     Indication: RAISED IOP
     Dosage: 2 Gtt, qd
     Route: 047
     Dates: start: 201210
  2. DORZOLAMIDE [Concomitant]
     Indication: RAISED IOP
     Dosage: 2 Gtt, bid
     Route: 047
  3. CHOLESTEROL MEDICINE [Concomitant]
     Indication: HIGH CHOLESTEROL
     Dosage: UNK, qd
     Route: 048

REACTIONS (1)
  - Eye pain [Unknown]
